FAERS Safety Report 8357493 (Version 3)
Quarter: 2013Q1

REPORT INFORMATION
  Report Type: Spontaneous
  Country: FR (occurrence: FR)
  Receive Date: 20120127
  Receipt Date: 20130123
  Transmission Date: 20140127
  Serious: Yes (Life-Threatening, Hospitalization)
  Sender: FDA-Public Use
  Company Number: FR-VERTEX PHARMACEUTICALS INC.-000000000000000106

PATIENT
  Age: 58 Year
  Sex: Male

DRUGS (7)
  1. INCIVO [Suspect]
     Indication: CHRONIC HEPATITIS C
     Dosage: DOSAGE FORM: TABLET
     Route: 048
     Dates: start: 20111108, end: 20120103
  2. PEGASYS [Suspect]
     Indication: CHRONIC HEPATITIS C
     Dosage: DOSAGE FORM: SOLUTION FOR INJECTION
     Route: 058
     Dates: start: 20111003, end: 20120103
  3. RIBAVIRINE [Suspect]
     Indication: CHRONIC HEPATITIS C
     Dosage: 1200 MG, QD
     Route: 048
     Dates: start: 20111003, end: 20120103
  4. PROZAC [Concomitant]
     Dosage: 20 MG, QD
     Dates: end: 20120103
  5. SILODOSIN [Concomitant]
     Dosage: 8 MG, QD
     Dates: end: 20120103
  6. VESICARE [Concomitant]
     Dates: end: 20120103
  7. SPECIAFOLDINE [Concomitant]
     Dates: end: 20120103

REACTIONS (4)
  - Pancytopenia [Unknown]
  - Aplastic anaemia [Unknown]
  - Condition aggravated [Not Recovered/Not Resolved]
  - Thrombocytopenia [Recovered/Resolved]
